FAERS Safety Report 8789977 (Version 2)
Quarter: 2012Q4

REPORT INFORMATION
  Report Type: Report from Study
  Country: US (occurrence: US)
  Receive Date: 20120917
  Receipt Date: 20120927
  Transmission Date: 20130627
  Serious: Yes (Hospitalization)
  Sender: FDA-Public Use
  Company Number: US-JNJFOC-20120904561

PATIENT
  Age: 67 Year
  Sex: Male

DRUGS (24)
  1. ACETAMINOPHEN [Suspect]
     Route: 065
  2. ACETAMINOPHEN [Suspect]
     Indication: PAIN
     Route: 065
  3. EUCERIN [Concomitant]
     Route: 065
  4. LISINOPRIL [Concomitant]
     Route: 065
  5. ALPRAZOLAM [Concomitant]
     Route: 065
  6. ASPIRIN [Concomitant]
     Route: 065
  7. BUMETANIDE [Concomitant]
     Route: 065
  8. DOFETILIDE [Concomitant]
     Route: 065
  9. FERROUS SULFATE [Concomitant]
     Route: 065
  10. GLIPIZIDE [Concomitant]
     Route: 065
  11. METOLAZONE [Concomitant]
     Route: 065
  12. METOPROLOL SUCCINATE [Concomitant]
     Route: 065
  13. MEXILETINE [Concomitant]
     Route: 065
  14. PRAVASTATIN [Concomitant]
     Route: 065
  15. TRYPSIN BALSAM PERU AND CASTOR OIL [Concomitant]
     Route: 065
  16. WARFARIN [Concomitant]
     Route: 065
  17. AN UNKNOWN MEDICATION [Concomitant]
     Route: 065
  18. COUMADIN [Concomitant]
  19. PRAVACHOL [Concomitant]
  20. GLUCOTROL [Concomitant]
     Route: 065
  21. BUMEX [Concomitant]
  22. IRON [Concomitant]
  23. XANAX [Concomitant]
  24. TOPROL XL [Concomitant]

REACTIONS (5)
  - Atrial tachycardia [Recovered/Resolved]
  - Anxiety [Recovered/Resolved]
  - Asthenia [Recovered/Resolved]
  - Depression [Recovered/Resolved]
  - Hypoglycaemia [Recovered/Resolved]
